FAERS Safety Report 11621870 (Version 4)
Quarter: 2016Q1

REPORT INFORMATION
  Report Type: Spontaneous
  Country: FR (occurrence: FR)
  Receive Date: 20151013
  Receipt Date: 20160219
  Transmission Date: 20160525
  Serious: Yes (Hospitalization, Other)
  Sender: FDA-Public Use
  Company Number: FR-LEO PHARMA-237541

PATIENT
  Age: 75 Year
  Sex: Male

DRUGS (1)
  1. PICATO [Suspect]
     Active Substance: INGENOL MEBUTATE
     Indication: ACTINIC KERATOSIS
     Route: 061
     Dates: start: 20150825, end: 20150827

REACTIONS (2)
  - Squamous cell carcinoma [Recovering/Resolving]
  - Application site reaction [Unknown]

NARRATIVE: CASE EVENT DATE: 201509
